FAERS Safety Report 11498809 (Version 1)
Quarter: 2015Q3

REPORT INFORMATION
  Report Type: Spontaneous
  Country: IT (occurrence: IT)
  Receive Date: 20150912
  Receipt Date: 20150912
  Transmission Date: 20151125
  Serious: Yes (Death)
  Sender: FDA-Public Use
  Company Number: IT-CIPLA LTD.-2015IT07161

PATIENT

DRUGS (5)
  1. FLUOROURACIL. [Suspect]
     Active Substance: FLUOROURACIL
     Dosage: 600 MG/M2, AS A 22-HOUR INFUSION ON DAYS 1 AND 2, IMMEDIATELY AFTER THE 5-FU BOLUS INJECTION
  2. FLUOROURACIL. [Suspect]
     Active Substance: FLUOROURACIL
     Indication: COLORECTAL CANCER METASTATIC
     Dosage: 400 MG/M2, AS AN INTRAVENOUS BOLUS INJECTION ON DAYS 1 AND 2
     Route: 042
  3. IRINOTECAN [Suspect]
     Active Substance: IRINOTECAN
     Indication: COLORECTAL CANCER METASTATIC
     Dosage: 180 MG/M2, AS A 1 HOUR INFUSION ON DAY 1
  4. CETUXIMAB [Suspect]
     Active Substance: CETUXIMAB
     Indication: COLORECTAL CANCER METASTATIC
     Dosage: 500 MG/M2, UNK
     Route: 065
  5. L-FOLINATE [Suspect]
     Active Substance: LEVOLEUCOVORIN
     Indication: COLORECTAL CANCER METASTATIC
     Dosage: 100 MG/M2, AS A 2-HOUR INFUSION ON DAYS 1 AND 2

REACTIONS (1)
  - Febrile neutropenia [Fatal]
